FAERS Safety Report 6098249-8 (Version None)
Quarter: 2009Q1

REPORT INFORMATION
  Report Type: 
  Country: None (occurrence: None)
  Receive Date: 20090227
  Receipt Date: 20090219
  Transmission Date: 20090719
  Serious: Yes (Hospitalization, Other)
  Sender: FDA-Public Use
  Company Number: US-GENENTECH-275414

PATIENT
  Sex: Male
  Weight: 75.6 kg

DRUGS (1)
  1. SOMATROPIN [Suspect]
     Indication: GROWTH HORMONE DEFICIENCY
     Dosage: 3.3 MG, QD
     Route: 058
     Dates: start: 20050216, end: 20081219

REACTIONS (1)
  - CENTRAL NERVOUS SYSTEM NEOPLASM [None]
